FAERS Safety Report 11067927 (Version 1)
Quarter: 2015Q2

REPORT INFORMATION
  Report Type: Spontaneous
  Country: TR (occurrence: TR)
  Receive Date: 20150427
  Receipt Date: 20150427
  Transmission Date: 20150821
  Serious: Yes (Death, Other)
  Sender: FDA-Public Use
  Company Number: TR-BAYER-2015-136369

PATIENT
  Age: 37 Year
  Sex: Male

DRUGS (8)
  1. PIPERACILLIN AND TAZOBACTAM [Suspect]
     Active Substance: PIPERACILLIN SODIUM\TAZOBACTAM SODIUM
     Dosage: 4.5 G INTRAVENOUSLY (IV) EVERY 6 HOURS
     Route: 042
  2. CIPROFLOXACIN BETAIN [Suspect]
     Active Substance: CIPROFLOXACIN
     Indication: BACTERAEMIA
     Dosage: 400 MG, BID
     Route: 042
  3. CIPROFLOXACIN BETAIN [Suspect]
     Active Substance: CIPROFLOXACIN
     Indication: FEBRILE NEUTROPENIA
  4. AMOXICILLIN W/CLAVULANIC ACID [Suspect]
     Active Substance: AMOXICILLIN\CLAVULANIC ACID
     Dosage: 1 G, Q8HR
     Route: 048
  5. FLUDARABINE [Concomitant]
     Active Substance: FLUDARABINE PHOSPHATE
     Dosage: 30 MG/M2, FLAG CHEMOTHERAPY
  6. IMIPENEM [Suspect]
     Active Substance: IMIPENEM
     Dosage: 500 MG IV EVERY 6 H
     Route: 042
  7. AMPHOTERICIN B. [Concomitant]
     Active Substance: AMPHOTERICIN B
     Dosage: 3 MG/KG/DAY
  8. TIGECYCLINE [Suspect]
     Active Substance: TIGECYCLINE
     Dosage: 150 MG IV EVERY 12 H

REACTIONS (2)
  - Bacterial sepsis [Fatal]
  - Drug ineffective [None]
